FAERS Safety Report 8361692-8 (Version None)
Quarter: 2012Q2

REPORT INFORMATION
  Report Type: 
  Country: None (occurrence: None)
  Receive Date: 20120514
  Receipt Date: 20120428
  Transmission Date: 20120825
  Serious: Yes (Hospitalization, Other)
  Sender: FDA-Public Use
  Company Number: CIP11000516

PATIENT
  Age: 57 Year
  Sex: Female
  Weight: 68 kg

DRUGS (16)
  1. NABUMETONE [Concomitant]
  2. VITAMIN D (COLECALCIFEROL) [Concomitant]
  3. FOLIC ACID [Concomitant]
  4. CLARINEX (LORATADINE, PSEUDOEPHEDRINE SULFATE) [Concomitant]
  5. ACTONEL [Suspect]
     Indication: OSTEOPENIA
     Dosage: 150 MG ONCE MONTHLY, ORAL
     Route: 048
     Dates: start: 20090501, end: 20100122
  6. FERROUS SULFATE TAB [Concomitant]
  7. PANTOPRAZOLE SODIUM (PANTOPRAZOLE SODIUM SESQUIHYDRATE) [Concomitant]
  8. ASPIRIN [Concomitant]
  9. NASONEX [Concomitant]
  10. HUMIRA [Concomitant]
  11. LEVOTHYROXINE SODIUM [Concomitant]
  12. LISINOPRIL [Concomitant]
  13. DYAZIDE [Concomitant]
  14. VALTREX [Concomitant]
  15. PREDNISONE TAB [Concomitant]
  16. METHOTREXATE [Concomitant]

REACTIONS (6)
  - FALL [None]
  - PAIN IN EXTREMITY [None]
  - STRESS FRACTURE [None]
  - FRACTURE DELAYED UNION [None]
  - FEMUR FRACTURE [None]
  - FRACTURE DISPLACEMENT [None]
